FAERS Safety Report 4616052-X (Version None)
Quarter: 2005Q1

REPORT INFORMATION
  Report Type: 
  Country: None (occurrence: None)
  Receive Date: 20050321
  Receipt Date: 20050303
  Transmission Date: 20050727
  Serious: Yes (Death)
  Sender: FDA-Public Use
  Company Number: S04-DEN-04751-01

PATIENT
  Age: 67 Year
  Sex: Male

DRUGS (5)
  1. AKARIN (CITALOPRAM) [Suspect]
     Indication: ANXIETY
     Dosage: 10 MG QD PO
     Route: 048
     Dates: end: 20040823
  2. AKARIN (CITALOPRAM) [Suspect]
     Indication: DEPRESSION
     Dosage: 10 MG QD PO
     Route: 048
     Dates: end: 20040823
  3. AKARIN (CITALOPRAM) [Suspect]
     Indication: ANXIETY
     Dosage: 20 MG QD PO
     Route: 048
     Dates: start: 20040824, end: 20040829
  4. AKARIN (CITALOPRAM) [Suspect]
     Indication: DEPRESSION
     Dosage: 20 MG QD PO
     Route: 048
     Dates: start: 20040824, end: 20040829
  5. VANDRAL (VENLAFAXINE HYDROCHLORIDE) [Concomitant]

REACTIONS (1)
  - COMPLETED SUICIDE [None]
